FAERS Safety Report 4434575-3 (Version None)
Quarter: 2004Q3

REPORT INFORMATION
  Report Type: 
  Country: None (occurrence: None)
  Receive Date: 20040721
  Receipt Date: 20031021
  Transmission Date: 20050211
  Serious: Yes (Hospitalization)
  Sender: FDA-Public Use
  Company Number: WAES 0310USA02621

PATIENT
  Age: 83 Year
  Sex: Male

DRUGS (1)
  1. VIOXX [Suspect]
     Dosage: 25 MG/DAILY/PO
     Route: 048

REACTIONS (2)
  - GASTRIC ULCER [None]
  - GASTROINTESTINAL HAEMORRHAGE [None]
